FAERS Safety Report 8842996 (Version 3)
Quarter: 2012Q4

REPORT INFORMATION
  Report Type: 
  Country: CH (occurrence: CH)
  Receive Date: 20121016
  Receipt Date: 20121220
  Transmission Date: 20130627
  Serious: Yes (Hospitalization)
  Sender: FDA-Public Use
  Company Number: CH-ABBOTT-12P-151-0991401-00

PATIENT
  Sex: Male
  Weight: 77 kg

DRUGS (3)
  1. LUCRIN DEPOT [Suspect]
     Indication: PROSTATE CANCER
     Route: 050
     Dates: start: 20120103
  2. ANTICOAGULANTS [Suspect]
     Indication: PRODUCT USED FOR UNKNOWN INDICATION
  3. MARCOUMAR [Suspect]
     Indication: PRODUCT USED FOR UNKNOWN INDICATION

REACTIONS (3)
  - Haemorrhage [Unknown]
  - Bone pain [Recovered/Resolved]
  - Prostatic specific antigen decreased [Unknown]
